FAERS Safety Report 7815249-5 (Version None)
Quarter: 2011Q4

REPORT INFORMATION
  Report Type: 
  Country: None (occurrence: None)
  Receive Date: 20111014
  Receipt Date: 20111011
  Transmission Date: 20120403
  Serious: Yes (Hospitalization)
  Sender: FDA-Public Use
  Company Number: GR-CELGENEUS-066-C5013-11092476

PATIENT
  Sex: Male
  Weight: 68 kg

DRUGS (20)
  1. DEXAMETHASONE [Suspect]
     Indication: MULTIPLE MYELOMA
     Dosage: 40 MILLIGRAM
     Route: 065
     Dates: start: 20101110
  2. ALLOPURINOL [Concomitant]
     Dosage: 100 MILLIGRAM
     Route: 048
     Dates: start: 20090101
  3. VALSARTAN [Concomitant]
     Indication: HYPERTENSION
     Dosage: 160 MILLIGRAM
     Route: 048
     Dates: start: 20090101
  4. VALSARTAN [Concomitant]
     Dosage: 160 MILLIGRAM
     Route: 048
     Dates: start: 20110923, end: 20110928
  5. PHENYTOIN [Concomitant]
     Indication: EPILEPSY
     Dosage: 100 MILLIGRAM
     Route: 048
     Dates: start: 20110919, end: 20110928
  6. LENALIDOMIDE [Suspect]
     Dosage: 5 MILLIGRAM
     Route: 048
     Dates: start: 20110905, end: 20110919
  7. METOPROLOL TARTRATE [Concomitant]
     Indication: HYPERTENSION
     Dosage: 100 MILLIGRAM
     Route: 048
     Dates: start: 20110926, end: 20110928
  8. FONDAPARINUX SODIUM [Concomitant]
     Indication: THROMBOSIS PROPHYLAXIS
     Dosage: 2.5 MILLIGRAM
     Route: 050
     Dates: start: 20110923, end: 20110924
  9. VALACYCLOVIR [Concomitant]
     Dosage: 500 MILLIGRAM
     Route: 048
     Dates: start: 20101110
  10. METOPROLOL TARTRATE [Concomitant]
     Indication: ATRIAL FIBRILLATION
  11. SINTROM [Concomitant]
     Indication: THROMBOSIS PROPHYLAXIS
     Dosage: 3 MILLIGRAM
     Route: 048
     Dates: start: 20110927, end: 20110928
  12. DEXAMETHASONE [Suspect]
     Dosage: 40 MILLIGRAM
     Route: 065
     Dates: start: 20110905, end: 20110919
  13. ASPIRIN [Concomitant]
     Indication: ANTIBIOTIC PROPHYLAXIS
     Dosage: 100 MILLIGRAM
     Route: 048
     Dates: start: 20101110
  14. AMLODIPINE [Concomitant]
     Indication: HYPERTENSION
     Dosage: 5 MILLIGRAM
     Route: 048
     Dates: start: 20090101
  15. FONDAPARINUX SODIUM [Concomitant]
     Dosage: 2.5 MILLIGRAM
     Route: 050
     Dates: start: 20110927, end: 20110927
  16. LENALIDOMIDE [Suspect]
     Indication: MULTIPLE MYELOMA
     Dosage: 10 MILLIGRAM
     Route: 048
     Dates: start: 20101110
  17. OMEPRAZOLE [Concomitant]
     Dosage: 20 MILLIGRAM
     Route: 048
     Dates: start: 20101110
  18. AMLODIPINE [Concomitant]
     Dosage: 5 MILLIGRAM
     Route: 048
     Dates: start: 20110923, end: 20110928
  19. HALOPERIDOL [Concomitant]
     Indication: EPILEPSY
     Dosage: 6 MILLIGRAM
     Route: 048
     Dates: start: 20110919, end: 20110928
  20. AMIODARONE HCL [Concomitant]
     Indication: ATRIAL FIBRILLATION
     Dosage: 400 MILLIGRAM
     Route: 048
     Dates: start: 20110923, end: 20110926

REACTIONS (5)
  - LOWER RESPIRATORY TRACT INFECTION [None]
  - ADENOSQUAMOUS CELL LUNG CANCER [None]
  - TRANSAMINASES INCREASED [None]
  - HYPOCALCAEMIA [None]
  - SEPSIS [None]
